FAERS Safety Report 9698097 (Version 2)
Quarter: 2013Q4

REPORT INFORMATION
  Report Type: Spontaneous
  Country: FR (occurrence: None)
  Receive Date: 20131112
  Receipt Date: 20131119
  Transmission Date: 20140711
  Serious: Yes (Death)
  Sender: FDA-Public Use
  Company Number: 2013038852

PATIENT
  Sex: Male

DRUGS (10)
  1. IMMUNOGLOBULIN [Suspect]
     Indication: PNEUMONIA MEASLES
     Dosage: 1 G/KG/DAY FOR 2 DAYS?
     Route: 042
  2. RIBAVIRIN (RIBAVIRIN) [Concomitant]
  3. BLEOMYCIN (BLEOMYCIN) [Concomitant]
  4. ETOPOSIDE (ETOPOSIDE) [Concomitant]
  5. DOXORUBICIN (DOXORUBICIN) [Concomitant]
  6. CYCLOPHOSPHAMIDE (CYCLOPHOSPHAMIDE) [Concomitant]
  7. VINCRISTINE (VINCRISTINE) [Concomitant]
  8. PROCARBAZINE (PROCARBAZINE) [Concomitant]
  9. PREDNISONE (PREDNISONE) [Concomitant]
  10. GALENIC /PIPERACILLIN/TAZOBACTAM (PIP/TAZO) [Concomitant]

REACTIONS (10)
  - Pneumonia measles [None]
  - Metabolic acidosis [None]
  - Propofol infusion syndrome [None]
  - Condition aggravated [None]
  - Drug ineffective [None]
  - Respiratory failure [None]
  - Oropharyngeal pain [None]
  - Conjunctivitis [None]
  - Hypotension [None]
  - Renal failure [None]
